FAERS Safety Report 4523263-0 (Version None)
Quarter: 2004Q4

REPORT INFORMATION
  Report Type: 
  Country: None (occurrence: None)
  Receive Date: 20041130
  Receipt Date: 20041110
  Transmission Date: 20050328
  Serious: Yes (Hospitalization)
  Sender: FDA-Public Use
  Company Number: THYM-10354

PATIENT
  Age: 26 Year
  Sex: Male
  Weight: 73.1 kg

DRUGS (2)
  1. THYMOGLOBULIN [Suspect]
     Indication: RENAL TRANSPLANT
     Dosage: 116 MG QD IV
     Route: 042
     Dates: start: 20040901, end: 20040904
  2. MYCOPHENOLATE MOFETIL [Concomitant]

REACTIONS (2)
  - LEUKOPENIA [None]
  - MOUTH ULCERATION [None]
